FAERS Safety Report 9228646 (Version 2)
Quarter: 2013Q2

REPORT INFORMATION
  Report Type: Spontaneous
  Country: BR (occurrence: BR)
  Receive Date: 20130412
  Receipt Date: 20130527
  Transmission Date: 20140414
  Serious: Yes (Hospitalization)
  Sender: FDA-Public Use
  Company Number: BR-BRISTOL-MYERS SQUIBB COMPANY-18753806

PATIENT
  Age: 49 Year
  Sex: Male

DRUGS (7)
  1. ONGLYZA TABS 5 MG [Suspect]
     Indication: DIABETES MELLITUS
     Dosage: 1DF: 1 TABLET, INTER: APR2013.
     Route: 048
     Dates: start: 2011
  2. METFORMIN HCL [Suspect]
  3. GLIMEPIRIDE [Suspect]
  4. HUMALOG [Concomitant]
  5. PIOGLITAZONE HCL [Concomitant]
  6. NAPRIX [Concomitant]
  7. ASPIRIN [Concomitant]

REACTIONS (3)
  - Renal failure acute [Recovered/Resolved]
  - Hypoglycaemia [Unknown]
  - Blood glucose abnormal [Unknown]
